FAERS Safety Report 5123037-6 (Version None)
Quarter: 2006Q4

REPORT INFORMATION
  Report Type: 
  Country: None (occurrence: None)
  Receive Date: 20061005
  Receipt Date: 20060920
  Transmission Date: 20070319
  Serious: Yes (Death)
  Sender: FDA-Public Use
  Company Number: US-2006-027805

PATIENT
  Age: 72 Year
  Sex: Male

DRUGS (1)
  1. BETASERON [Suspect]
     Indication: MULTIPLE SCLEROSIS
     Dosage: 8 MU, EVERY 2D, SUBCUTANEOUS
     Route: 058
     Dates: start: 19940120, end: 20060921

REACTIONS (1)
  - DEATH [None]
